FAERS Safety Report 5069783-4 (Version None)
Quarter: 2006Q3

REPORT INFORMATION
  Report Type: 
  Country: None (occurrence: None)
  Receive Date: 20060803
  Receipt Date: 20060725
  Transmission Date: 20061208
  Serious: Yes (Hospitalization)
  Sender: FDA-Public Use
  Company Number: FR-GLAXOSMITHKLINE-B0432186A

PATIENT
  Age: 85 Year
  Sex: Female
  Weight: 72 kg

DRUGS (9)
  1. AUGMENTIN '125' [Suspect]
     Dosage: 3G PER DAY
     Route: 048
     Dates: start: 20060425, end: 20060509
  2. OFLOCET 200 MG [Suspect]
     Dosage: 400MG PER DAY
     Route: 048
     Dates: start: 20060425, end: 20060515
  3. NEXIUM [Suspect]
     Route: 048
     Dates: start: 20060425, end: 20060520
  4. CALCIPARINE [Suspect]
     Dosage: .6ML PER DAY
     Route: 058
     Dates: start: 20060420, end: 20060518
  5. OMEPRAZOLE [Suspect]
     Dosage: 80MG PER DAY
     Route: 042
     Dates: start: 20060420, end: 20060425
  6. DI-ANTALVIC [Suspect]
     Dosage: 3TAB PER DAY
     Route: 048
     Dates: start: 20060425, end: 20060513
  7. ALDACTONE [Concomitant]
     Dosage: 25MG PER DAY
     Route: 048
     Dates: start: 20060425, end: 20060520
  8. ALDACTAZINE [Concomitant]
     Dosage: 1UNIT PER DAY
     Route: 065
  9. NIDREL [Concomitant]
     Dosage: 10MG PER DAY
     Route: 065

REACTIONS (1)
  - ECZEMA [None]
